FAERS Safety Report 25997198 (Version 1)
Quarter: 2025Q4

REPORT INFORMATION
  Report Type: Spontaneous
  Country: US (occurrence: US)
  Receive Date: 20251104
  Receipt Date: 20251104
  Transmission Date: 20260119
  Serious: No
  Sender: PFIZER
  Company Number: US-PFIZER INC-202500216026

PATIENT
  Age: 70 Year
  Sex: Female

DRUGS (1)
  1. IBRANCE [Suspect]
     Active Substance: PALBOCICLIB
     Indication: Breast cancer female
     Dosage: 75 MG, CYCLIC, DAILY, 21 DAYS ON, 7 DAYS OFF
     Route: 048

REACTIONS (3)
  - Pruritus [Recovering/Resolving]
  - Arthritis [Recovering/Resolving]
  - Arthritis [Recovering/Resolving]
